FAERS Safety Report 12233383 (Version 4)
Quarter: 2018Q1

REPORT INFORMATION
  Report Type: Report from Study
  Country: JP (occurrence: JP)
  Receive Date: 20160404
  Receipt Date: 20180329
  Transmission Date: 20180508
  Serious: Yes (Death, Hospitalization)
  Sender: FDA-Public Use
  Company Number: JP-ACTELION-A-CH2016-133780

PATIENT
  Age: 70 Year
  Sex: Female

DRUGS (8)
  1. PREDONINE [Concomitant]
     Active Substance: PREDNISOLONE
  2. IMURAN [Concomitant]
     Active Substance: AZATHIOPRINE
  3. OXYGEN. [Concomitant]
     Active Substance: OXYGEN
  4. PROGRAF [Concomitant]
     Active Substance: TACROLIMUS\TACROLIMUS ANHYDROUS
  5. TACROLIMUS MONOHYDRATE [Concomitant]
     Active Substance: TACROLIMUS
  6. OLMETEC [Concomitant]
     Active Substance: OLMESARTAN MEDOXOMIL
  7. ADEMPAS [Concomitant]
     Active Substance: RIOCIGUAT
  8. OPSUMIT [Suspect]
     Active Substance: MACITENTAN
     Indication: PULMONARY ARTERIAL HYPERTENSION
     Dosage: 10 MG, OD
     Route: 048
     Dates: start: 20151110, end: 20170211

REACTIONS (2)
  - Sudden death [Fatal]
  - Interstitial lung disease [Recovering/Resolving]

NARRATIVE: CASE EVENT DATE: 20160215
